FAERS Safety Report 9953247 (Version 1)
Quarter: 2014Q1

REPORT INFORMATION
  Report Type: Report from Study
  Country: US (occurrence: US)
  Receive Date: 20140304
  Receipt Date: 20140304
  Transmission Date: 20141002
  Serious: No
  Sender: FDA-Public Use
  Company Number: US-ABBVIE-13P-163-1075966-00

PATIENT
  Age: 65 Year
  Sex: Male
  Weight: 76.27 kg

DRUGS (4)
  1. HUMIRA [Suspect]
     Indication: CROHN^S DISEASE
     Route: 058
     Dates: start: 201212
  2. VITAMIN D [Concomitant]
     Indication: HYPOVITAMINOSIS
  3. FOASAMAX [Concomitant]
     Indication: OSTEOPOROSIS
  4. IRON INJECTION [Concomitant]
     Indication: ANAEMIA

REACTIONS (7)
  - Device malfunction [Unknown]
  - Incorrect dose administered [Recovered/Resolved]
  - Injection site haemorrhage [Recovered/Resolved]
  - Injection site nodule [Recovered/Resolved]
  - Injection site bruising [Not Recovered/Not Resolved]
  - Injection site swelling [Not Recovered/Not Resolved]
  - Injection site pain [Not Recovered/Not Resolved]
